FAERS Safety Report 16046254 (Version 1)
Quarter: 2019Q1

REPORT INFORMATION
  Report Type: Spontaneous
  Country: US (occurrence: US)
  Receive Date: 20190307
  Receipt Date: 20190307
  Transmission Date: 20190418
  Serious: No
  Sender: FDA-Public Use
  Company Number: US-LEO PHARMA-317174

PATIENT
  Age: 50 Year
  Sex: Male

DRUGS (1)
  1. DAIVOBET [Suspect]
     Active Substance: BETAMETHASONE DIPROPIONATE\CALCIPOTRIENE
     Indication: PSORIASIS
     Dosage: CALCIPOTRIENE 0.005% AND BETAMETHASONE DIPROPIONATE 0.064%?APPLY ONCE DAILY TO KNEES AND ELBOWS
     Route: 061
     Dates: start: 2018

REACTIONS (2)
  - Folliculitis [Not Recovered/Not Resolved]
  - Drug ineffective [Unknown]
